FAERS Safety Report 21724825 (Version 1)
Quarter: 2022Q4

REPORT INFORMATION
  Report Type: Spontaneous
  Country: FR (occurrence: FR)
  Receive Date: 20221214
  Receipt Date: 20221214
  Transmission Date: 20230113
  Serious: Yes (Hospitalization)
  Sender: FDA-Public Use
  Company Number: FR-AstraZeneca-2022A403101

PATIENT
  Sex: Female

DRUGS (1)
  1. SYNAGIS [Suspect]
     Active Substance: PALIVIZUMAB
     Indication: Respiratory syncytial virus bronchiolitis
     Dosage: ONCE/SINGLE ADMINISTRATION

REACTIONS (2)
  - Respiratory syncytial virus bronchiolitis [Unknown]
  - Off label use [Unknown]
